FAERS Safety Report 4436698-1 (Version None)
Quarter: 2004Q3

REPORT INFORMATION
  Report Type: 
  Country: None (occurrence: None)
  Receive Date: 20040827
  Receipt Date: 20040827
  Transmission Date: 20050211
  Serious: Yes (Hospitalization)
  Sender: FDA-Public Use
  Company Number: None

PATIENT
  Age: 42 Year
  Sex: Female
  Weight: 46 kg

DRUGS (2)
  1. ONTAK [Suspect]
     Indication: NON-SMALL CELL LUNG CANCER RECURRENT
     Dosage: 850 MCG QD X 5 D (IV)
     Route: 042
     Dates: start: 20040816, end: 20040820
  2. DECADRON [Concomitant]

REACTIONS (4)
  - CARDIAC TAMPONADE [None]
  - CHEST PAIN [None]
  - DYSPNOEA [None]
  - PERICARDIAL EFFUSION [None]
